FAERS Safety Report 10282411 (Version 1)
Quarter: 2014Q3

REPORT INFORMATION
  Report Type: Report from Study
  Country: US (occurrence: US)
  Receive Date: 20140707
  Receipt Date: 20140707
  Transmission Date: 20150326
  Serious: Yes (Other)
  Sender: FDA-Public Use
  Company Number: US-ABBVIE-14P-163-1254779-00

PATIENT
  Sex: Female

DRUGS (4)
  1. EXCEDRIN [Concomitant]
     Active Substance: ACETAMINOPHEN\ASPIRIN\CAFFEINE
     Indication: MIGRAINE
     Dosage: PRN
  2. HUMIRA [Suspect]
     Active Substance: ADALIMUMAB
  3. OMEPRAZOLE. [Suspect]
     Active Substance: OMEPRAZOLE
     Indication: GASTROOESOPHAGEAL REFLUX DISEASE
  4. HUMIRA [Suspect]
     Active Substance: ADALIMUMAB
     Indication: ANKYLOSING SPONDYLITIS
     Dates: start: 2008

REACTIONS (11)
  - Gastrooesophageal reflux disease [Unknown]
  - Back pain [Recovering/Resolving]
  - Gallbladder operation [Recovering/Resolving]
  - Musculoskeletal pain [Unknown]
  - Rash [Recovered/Resolved]
  - Musculoskeletal pain [Unknown]
  - Fibromyalgia [Unknown]
  - Arthralgia [Recovering/Resolving]
  - Drug effect decreased [Unknown]
  - Intervertebral disc degeneration [Unknown]
  - Abdominal pain [Unknown]

NARRATIVE: CASE EVENT DATE: 2010
